FAERS Safety Report 16580249 (Version 1)
Quarter: 2019Q3

REPORT INFORMATION
  Report Type: Spontaneous
  Country: US (occurrence: US)
  Receive Date: 20190716
  Receipt Date: 20190716
  Transmission Date: 20191004
  Serious: Yes (Hospitalization)
  Sender: FDA-Public Use
  Company Number: US-THERAPEUTICSMD-2019TMD01781

PATIENT
  Age: 59 Year
  Sex: Female
  Weight: 86.17 kg

DRUGS (17)
  1. IMVEXXY [Suspect]
     Active Substance: ESTRADIOL
     Indication: VULVOVAGINAL DRYNESS
     Dosage: 10 ?G, 1X/DAY AT BEDTIME
     Route: 067
     Dates: start: 20190515, end: 20190528
  2. IMVEXXY [Suspect]
     Active Substance: ESTRADIOL
     Dosage: 10 ?G, 2X/WEEK AT BEDTIME
     Route: 067
     Dates: start: 20190529, end: 20190617
  3. METHOTREXATE. [Concomitant]
     Active Substance: METHOTREXATE
  4. FOLIC ACID. [Concomitant]
     Active Substance: FOLIC ACID
  5. CELEXA [Concomitant]
     Active Substance: CITALOPRAM HYDROBROMIDE
  6. FLONASE [Concomitant]
     Active Substance: FLUTICASONE PROPIONATE
  7. CITRACAL [Concomitant]
     Active Substance: CALCIUM CITRATE
  8. BIOTIN [Concomitant]
     Active Substance: BIOTIN
  9. ALBUTEROL. [Concomitant]
     Active Substance: ALBUTEROL
  10. VITAMIN C [Concomitant]
     Active Substance: ASCORBIC ACID
  11. FLAXSEED [Concomitant]
     Active Substance: FLAX SEED
  12. ALEVE [Concomitant]
     Active Substance: NAPROXEN SODIUM
  13. ENBREL [Concomitant]
     Active Substance: ETANERCEPT
  14. XANAX [Concomitant]
     Active Substance: ALPRAZOLAM
  15. FLEXERIL [Concomitant]
     Active Substance: CYCLOBENZAPRINE HYDROCHLORIDE
  16. VITAMIN D [Concomitant]
     Active Substance: VITAMIN D NOS
  17. ZYRTEC [Concomitant]
     Active Substance: CETIRIZINE HYDROCHLORIDE

REACTIONS (4)
  - Dizziness [Recovering/Resolving]
  - Off label use [Recovered/Resolved]
  - Vomiting [Recovering/Resolving]
  - Nausea [Recovering/Resolving]

NARRATIVE: CASE EVENT DATE: 20190515
